FAERS Safety Report 14167255 (Version 2)
Quarter: 2019Q1

REPORT INFORMATION
  Report Type: Spontaneous
  Country: US (occurrence: US)
  Receive Date: 20171107
  Receipt Date: 20190206
  Transmission Date: 20190417
  Serious: No
  Sender: FDA-Public Use
  Company Number: US-OTSUKA-2017_023252

PATIENT
  Age: 24 Year
  Sex: Male

DRUGS (1)
  1. ONZETRA [Suspect]
     Active Substance: SUMATRIPTAN SUCCINATE
     Indication: PRODUCT USED FOR UNKNOWN INDICATION
     Dosage: UNK
     Route: 065

REACTIONS (1)
  - Drug ineffective [Unknown]
